FAERS Safety Report 9782681 (Version 1)
Quarter: 2013Q4

REPORT INFORMATION
  Report Type: Spontaneous
  Country: JP (occurrence: JP)
  Receive Date: 20131226
  Receipt Date: 20131226
  Transmission Date: 20140711
  Serious: Yes (Other)
  Sender: FDA-Public Use
  Company Number: JP-JNJFOC-20131213523

PATIENT
  Age: 76 Year
  Sex: Female

DRUGS (1)
  1. ITRIZOLE [Suspect]
     Indication: ASPERGILLUS INFECTION
     Route: 048

REACTIONS (3)
  - Cardiac failure [Unknown]
  - Pulmonary oedema [Unknown]
  - Myocarditis [Unknown]
